FAERS Safety Report 25314172 (Version 1)
Quarter: 2025Q2

REPORT INFORMATION
  Report Type: Other
  Country: CA (occurrence: CA)
  Receive Date: 20250514
  Receipt Date: 20250514
  Transmission Date: 20250716
  Serious: Yes (Other)
  Sender: PFIZER
  Company Number: CA-PFIZER INC-202500100367

PATIENT
  Age: 29 Year
  Sex: Male

DRUGS (10)
  1. FILGRASTIM [Suspect]
     Active Substance: FILGRASTIM
     Indication: Familial haemophagocytic lymphohistiocytosis
     Route: 065
  2. ALEMTUZUMAB [Concomitant]
     Active Substance: ALEMTUZUMAB
     Route: 042
  3. ANAKINRA [Concomitant]
     Active Substance: ANAKINRA
  4. CYCLOSPORINE [Concomitant]
     Active Substance: CYCLOSPORINE
     Route: 065
  5. ELTROMBOPAG [Concomitant]
     Active Substance: ELTROMBOPAG
  6. FLUDARABINE [Concomitant]
     Active Substance: FLUDARABINE PHOSPHATE
  7. MELPHALAN HYDROCHLORIDE [Concomitant]
     Active Substance: MELPHALAN HYDROCHLORIDE
  8. PREDNISONE [Concomitant]
     Active Substance: PREDNISONE
     Indication: Graft versus host disease
  9. TACROLIMUS [Concomitant]
     Active Substance: TACROLIMUS
     Indication: Graft versus host disease
  10. TOCILIZUMAB [Concomitant]
     Active Substance: TOCILIZUMAB

REACTIONS (5)
  - Dry eye [Recovered/Resolved]
  - Familial haemophagocytic lymphohistiocytosis [Recovered/Resolved]
  - Graft versus host disease [Recovered/Resolved]
  - Lichenoid keratosis [Recovered/Resolved]
  - Off label use [Recovered/Resolved]
